FAERS Safety Report 6274333-0 (Version None)
Quarter: 2009Q3

REPORT INFORMATION
  Report Type: 
  Country: None (occurrence: None)
  Receive Date: 20090716
  Receipt Date: 20090508
  Transmission Date: 20100115
  Serious: Yes (Other)
  Sender: FDA-Public Use
  Company Number: ADR71592009(ARROW LOG NO.:SE- 2009-07)

PATIENT
  Age: 77 Year
  Sex: Female

DRUGS (2)
  1. CIPROFLOXACIN [Suspect]
     Indication: URINARY TRACT INFECTION
     Dosage: 500 MG TWICE PER DAY, ORAL
     Route: 048
     Dates: start: 20090331, end: 20090409
  2. BACTRIM [Concomitant]

REACTIONS (2)
  - ECZEMA [None]
  - URTICARIA [None]
